FAERS Safety Report 9025623 (Version 1)
Quarter: 2013Q1

REPORT INFORMATION
  Report Type: Spontaneous
  Country: US (occurrence: US)
  Receive Date: 20130123
  Receipt Date: 20130123
  Transmission Date: 20140127
  Serious: Yes (Death, Hospitalization, Other)
  Sender: FDA-Public Use
  Company Number: US-PAR PHARMACEUTICAL, INC-2013SCPR005261

PATIENT
  Age: 33 Year
  Sex: Female

DRUGS (3)
  1. DIAZEPAM [Suspect]
     Indication: PRODUCT USED FOR UNKNOWN INDICATION
     Dosage: 15 MG, UNKNOWN
     Route: 048
  2. CLONAZEPAM [Suspect]
     Indication: PRODUCT USED FOR UNKNOWN INDICATION
     Dosage: 1.5 MG, UNKNOWN
     Route: 048
  3. AMANTADINE [Suspect]
     Indication: PRODUCT USED FOR UNKNOWN INDICATION
     Dosage: 62.5 G, UNKNOWN
     Route: 048

REACTIONS (9)
  - Death [Fatal]
  - Completed suicide [Fatal]
  - Ventricular tachycardia [Unknown]
  - Cardiac arrest [Unknown]
  - Convulsion [Not Recovered/Not Resolved]
  - Acute respiratory distress syndrome [Unknown]
  - Septic shock [Unknown]
  - Disorientation [Unknown]
  - Hallucination [Unknown]
